FAERS Safety Report 8954446 (Version 3)
Quarter: 2013Q2

REPORT INFORMATION
  Report Type: Report from Study
  Country: JP (occurrence: JP)
  Receive Date: 20121210
  Receipt Date: 20130404
  Transmission Date: 20140414
  Serious: Yes (Hospitalization)
  Sender: FDA-Public Use
  Company Number: PHHY2012JP060113

PATIENT
  Age: 79 Year
  Sex: Female

DRUGS (6)
  1. RIVASTIGMIN [Suspect]
     Indication: DEMENTIA ALZHEIMER^S TYPE
     Dosage: 4.5 MG, DAILY
     Route: 062
     Dates: start: 20120114, end: 20120210
  2. RIVASTIGMIN [Suspect]
     Dosage: 9 MG, DAILY
     Route: 062
     Dates: start: 20120211, end: 20120309
  3. RIVASTIGMIN [Suspect]
     Dosage: 13.5 MG, DAILY
     Route: 062
     Dates: start: 20120310, end: 20120406
  4. RIVASTIGMIN [Suspect]
     Dosage: 18 MG, DAILY
     Route: 062
     Dates: start: 20120407, end: 20120706
  5. LEVODOPA-CARBIDOPA [Concomitant]
     Dates: start: 201007
  6. PERGOLIDE [Concomitant]
     Dates: start: 201007

REACTIONS (9)
  - Anaemia [Recovering/Resolving]
  - Disease progression [Recovering/Resolving]
  - Gastric ulcer [Recovering/Resolving]
  - Gastrointestinal haemorrhage [Recovering/Resolving]
  - Melaena [Recovered/Resolved]
  - General physical health deterioration [Unknown]
  - Electrocardiogram T wave abnormal [Unknown]
  - Decreased appetite [Unknown]
  - Nausea [Unknown]
